FAERS Safety Report 11064956 (Version 2)
Quarter: 2015Q2

REPORT INFORMATION
  Report Type: Spontaneous
  Country: US (occurrence: US)
  Receive Date: 20150424
  Receipt Date: 20150524
  Transmission Date: 20150821
  Serious: No
  Sender: FDA-Public Use
  Company Number: US-JNJFOC-20150301577

PATIENT

DRUGS (1)
  1. METHYLPHENIDATE HYDROCHLORIDE. [Suspect]
     Active Substance: METHYLPHENIDATE HYDROCHLORIDE
     Indication: ATTENTION DEFICIT/HYPERACTIVITY DISORDER
     Route: 048

REACTIONS (18)
  - Abdominal pain upper [Unknown]
  - Depressed mood [Unknown]
  - Heart rate increased [Unknown]
  - Affect lability [Unknown]
  - Oropharyngeal pain [Unknown]
  - Aggression [Unknown]
  - Weight decreased [Unknown]
  - Initial insomnia [Unknown]
  - Vomiting [Unknown]
  - Mood altered [Unknown]
  - Insomnia [Unknown]
  - Irritability [Unknown]
  - Decreased appetite [Unknown]
  - Sleep disorder [Unknown]
  - Fatigue [Unknown]
  - Nausea [Unknown]
  - Cough [Unknown]
  - Sedation [Unknown]
